FAERS Safety Report 14917480 (Version 4)
Quarter: 2018Q2

REPORT INFORMATION
  Report Type: Spontaneous
  Country: US (occurrence: US)
  Receive Date: 20180521
  Receipt Date: 20180604
  Transmission Date: 20180711
  Serious: Yes (Life-Threatening, Other)
  Sender: FDA-Public Use
  Company Number: US-JNJFOC-20180511306

PATIENT
  Sex: Female
  Weight: 69.4 kg

DRUGS (3)
  1. TOPIRAMATE. [Suspect]
     Active Substance: TOPIRAMATE
     Indication: EPILEPSY
     Route: 048
  2. CITALOPRAM [Concomitant]
     Active Substance: CITALOPRAM HYDROBROMIDE
     Indication: ANXIETY
     Route: 065
  3. TOPAMAX [Suspect]
     Active Substance: TOPIRAMATE
     Indication: EPILEPSY
     Route: 048

REACTIONS (7)
  - Drug ineffective [Unknown]
  - Panic attack [Unknown]
  - Drug dose omission [Unknown]
  - Coma [Unknown]
  - Seizure [Recovered/Resolved]
  - Aura [Recovered/Resolved]
  - Generalised tonic-clonic seizure [Unknown]
